FAERS Safety Report 8836771 (Version 2)
Quarter: 2013Q1

REPORT INFORMATION
  Report Type: Spontaneous
  Country: FR (occurrence: None)
  Receive Date: 20121010
  Receipt Date: 20121106
  Transmission Date: 20140127
  Serious: Yes (Disabling)
  Sender: FDA-Public Use
  Company Number: DSM-2012-01076

PATIENT
  Age: 55 Year
  Sex: Male
  Weight: 88 kg

DRUGS (2)
  1. AXELER [Suspect]
     Indication: HYPERTENSION
     Route: 048
     Dates: start: 20100902, end: 20120802
  2. CRESTOR (ROSUVASTATIN CALCIUM)(ROSUVASTATIN CALCIUM) [Concomitant]

REACTIONS (3)
  - Parkinson^s disease [None]
  - Extrapyramidal disorder [None]
  - Activities of daily living impaired [None]
